FAERS Safety Report 11692273 (Version 2)
Quarter: 2015Q4

REPORT INFORMATION
  Report Type: Spontaneous
  Country: GB (occurrence: GB)
  Receive Date: 20151103
  Receipt Date: 20151109
  Transmission Date: 20160304
  Serious: Yes (Other)
  Sender: FDA-Public Use
  Company Number: GB-ROCHE-1650726

PATIENT
  Sex: Male

DRUGS (4)
  1. IRINOTECAN [Concomitant]
     Active Substance: IRINOTECAN
  2. 5-FU [Concomitant]
     Active Substance: FLUOROURACIL
  3. AVASTIN [Suspect]
     Active Substance: BEVACIZUMAB
     Indication: PRODUCT USED FOR UNKNOWN INDICATION
     Route: 065
  4. ERTAPENEM [Concomitant]
     Active Substance: ERTAPENEM

REACTIONS (19)
  - Skin abrasion [Unknown]
  - Bladder discomfort [Unknown]
  - Abdominal discomfort [Unknown]
  - Insomnia [Unknown]
  - Fall [Unknown]
  - Musculoskeletal discomfort [Unknown]
  - Asthenia [Unknown]
  - Discomfort [Unknown]
  - Oedema peripheral [Unknown]
  - Decreased appetite [Unknown]
  - Abdominal rigidity [Unknown]
  - Diarrhoea [Unknown]
  - Nocturia [Unknown]
  - Dyspnoea [Unknown]
  - Abdominal distension [Unknown]
  - Blood urine present [Unknown]
  - Back pain [Unknown]
  - Ascites [Unknown]
  - Dyspnoea exertional [Unknown]
